FAERS Safety Report 11613587 (Version 2)
Quarter: 2015Q4

REPORT INFORMATION
  Report Type: Report from Study
  Country: GR (occurrence: GR)
  Receive Date: 20151008
  Receipt Date: 20151123
  Transmission Date: 20160304
  Serious: Yes (Hospitalization, Disabling)
  Sender: FDA-Public Use
  Company Number: GR-ABBVIE-14P-066-1286813-00

PATIENT
  Sex: Female

DRUGS (9)
  1. CILROTON [Concomitant]
     Indication: PRODUCT USED FOR UNKNOWN INDICATION
     Route: 048
  2. KERLONE [Concomitant]
     Active Substance: BETAXOLOL HYDROCHLORIDE
     Indication: PRODUCT USED FOR UNKNOWN INDICATION
     Route: 048
  3. DUODOPA [Suspect]
     Active Substance: CARBIDOPA\LEVODOPA
     Indication: PARKINSON^S DISEASE
     Dosage: MD: 9 ML, CD: 4.6 ML/H, ED: 2 ML
     Route: 050
     Dates: start: 2010
  4. SEROQUEL [Concomitant]
     Active Substance: QUETIAPINE FUMARATE
     Indication: PRODUCT USED FOR UNKNOWN INDICATION
     Route: 048
  5. NEUROBION [Concomitant]
     Active Substance: CYANOCOBALAMIN\PYRIDOXINE\THIAMINE
     Indication: PRODUCT USED FOR UNKNOWN INDICATION
     Route: 048
  6. LYRICA [Concomitant]
     Active Substance: PREGABALIN
     Indication: PRODUCT USED FOR UNKNOWN INDICATION
     Route: 048
  7. RIVOTRIL [Concomitant]
     Active Substance: CLONAZEPAM
     Indication: PRODUCT USED FOR UNKNOWN INDICATION
     Route: 048
  8. PRESSURIL [Concomitant]
     Indication: HYPERTENSION
     Dosage: FREQUENCY 0.5
     Route: 048
  9. CLONOTRIL [Concomitant]
     Indication: PRODUCT USED FOR UNKNOWN INDICATION
     Route: 048

REACTIONS (7)
  - Hallucination [Recovering/Resolving]
  - Pleurothotonus [Not Recovered/Not Resolved]
  - Hip fracture [Unknown]
  - Incorrect route of drug administration [Unknown]
  - Decubitus ulcer [Unknown]
  - Impaired healing [Unknown]
  - Depression [Unknown]

NARRATIVE: CASE EVENT DATE: 2012
